FAERS Safety Report 6316492-7 (Version None)
Quarter: 2009Q3

REPORT INFORMATION
  Report Type: 
  Country: None (occurrence: None)
  Receive Date: 20090820
  Receipt Date: 20090813
  Transmission Date: 20100115
  Serious: Yes (Hospitalization, Disabling, Congenital Anomaly, Other)
  Sender: FDA-Public Use
  Company Number: FR-ASTRAZENECA-2009SE05134

PATIENT
  Age: 23807 Day
  Sex: Female
  Weight: 60 kg

DRUGS (5)
  1. ARIMIDEX [Suspect]
     Indication: BREAST CANCER
     Route: 048
     Dates: start: 20050101, end: 20090615
  2. LOPRESSOR [Concomitant]
     Indication: ARRHYTHMIA
     Route: 065
     Dates: start: 20040101
  3. FLECAINIDE ACETATE [Concomitant]
     Indication: ARRHYTHMIA
     Route: 065
     Dates: start: 20040101
  4. FIXICAL [Concomitant]
     Indication: OSTEOPENIA
     Route: 065
     Dates: start: 20090101
  5. ZYMAD [Concomitant]
     Indication: OSTEOPENIA
     Route: 065
     Dates: start: 20090101

REACTIONS (2)
  - TENDON RUPTURE [None]
  - TENOSYNOVITIS STENOSANS [None]
